FAERS Safety Report 15197351 (Version 1)
Quarter: 2018Q3

REPORT INFORMATION
  Report Type: Other
  Country: CA (occurrence: CA)
  Receive Date: 20180725
  Receipt Date: 20180725
  Transmission Date: 20181010
  Serious: Yes (Other)
  Sender: FDA-Public Use
  Company Number: CA-PFIZER INC-2018296700

PATIENT
  Age: 57 Year
  Sex: Male

DRUGS (14)
  1. PROPOFOL. [Suspect]
     Active Substance: PROPOFOL
     Indication: PERIPHERAL NERVE TRANSPOSITION
     Dosage: 200 MG, UNK
  2. FENTANYL CITRATE. [Suspect]
     Active Substance: FENTANYL CITRATE
     Indication: INDUCTION OF ANAESTHESIA
  3. DEXMEDETOMIDINE HYDROCHLORIDE. [Suspect]
     Active Substance: DEXMEDETOMIDINE HYDROCHLORIDE
     Indication: PERIPHERAL NERVE TRANSPOSITION
     Dosage: 44 UG, UNK
  4. DEXMEDETOMIDINE HYDROCHLORIDE. [Suspect]
     Active Substance: DEXMEDETOMIDINE HYDROCHLORIDE
     Indication: PERIPHERAL NERVE TRANSPOSITION
     Dosage: UNK (TOTAL)
     Route: 041
  5. FENTANYL CITRATE. [Suspect]
     Active Substance: FENTANYL CITRATE
     Indication: PERIPHERAL NERVE TRANSPOSITION
     Dosage: 200 UG, UNK
  6. MIDAZOLAM [Suspect]
     Active Substance: MIDAZOLAM HYDROCHLORIDE
     Indication: PERIPHERAL NERVE TRANSPOSITION
     Dosage: 2 MG, UNK
     Route: 042
  7. SEVOFLURANE. [Suspect]
     Active Substance: SEVOFLURANE
     Indication: PERIPHERAL NERVE TRANSPOSITION
     Dosage: 60 MG, UNK
  8. DEXMEDETOMIDINE HYDROCHLORIDE. [Suspect]
     Active Substance: DEXMEDETOMIDINE HYDROCHLORIDE
     Indication: INDUCTION OF ANAESTHESIA
  9. MIDAZOLAM [Suspect]
     Active Substance: MIDAZOLAM HYDROCHLORIDE
     Indication: PERIPHERAL NERVE TRANSPOSITION
     Dosage: UNK
  10. PROPOFOL. [Suspect]
     Active Substance: PROPOFOL
     Indication: INDUCTION OF ANAESTHESIA
  11. DEXMEDETOMIDINE HYDROCHLORIDE. [Suspect]
     Active Substance: DEXMEDETOMIDINE HYDROCHLORIDE
     Indication: INDUCTION OF ANAESTHESIA
  12. MIDAZOLAM [Suspect]
     Active Substance: MIDAZOLAM HYDROCHLORIDE
     Indication: INDUCTION OF ANAESTHESIA
  13. MIDAZOLAM [Suspect]
     Active Substance: MIDAZOLAM HYDROCHLORIDE
     Indication: INDUCTION OF ANAESTHESIA
  14. SEVOFLURANE. [Suspect]
     Active Substance: SEVOFLURANE
     Indication: INDUCTION OF ANAESTHESIA

REACTIONS (5)
  - Seizure like phenomena [Unknown]
  - Tachycardia [Unknown]
  - Nausea [Unknown]
  - Tachypnoea [Unknown]
  - Dyskinesia [Unknown]
